FAERS Safety Report 24035737 (Version 3)
Quarter: 2024Q3

REPORT INFORMATION
  Report Type: Spontaneous
  Country: US (occurrence: US)
  Receive Date: 20240701
  Receipt Date: 20240710
  Transmission Date: 20241017
  Serious: No
  Sender: ROCHE
  Company Number: US-ROCHE-10000012518

PATIENT
  Age: 45 Year
  Sex: Female

DRUGS (4)
  1. OCREVUS [Suspect]
     Active Substance: OCRELIZUMAB
     Indication: Relapsing-remitting multiple sclerosis
     Route: 042
     Dates: start: 202202
  2. MINOXIDIL [Concomitant]
     Active Substance: MINOXIDIL
  3. BIOTIN [Concomitant]
     Active Substance: BIOTIN
     Dosage: 25000 MCG
     Dates: start: 2023
  4. AVONEX [Concomitant]
     Active Substance: INTERFERON BETA-1A
     Route: 030

REACTIONS (1)
  - Alopecia [Unknown]
